FAERS Safety Report 25323594 (Version 1)
Quarter: 2025Q2

REPORT INFORMATION
  Report Type: Spontaneous
  Country: US (occurrence: US)
  Receive Date: 20250516
  Receipt Date: 20250516
  Transmission Date: 20250717
  Serious: No
  Sender: Hibrow Healthcare
  Company Number: US-Hibrow Healthcare Private Ltd-2176853

PATIENT
  Age: 7 Month
  Sex: Female

DRUGS (2)
  1. BACLOFEN [Suspect]
     Active Substance: BACLOFEN
     Indication: Product used for unknown indication
  2. VECURONIUM [Concomitant]
     Active Substance: VECURONIUM BROMIDE

REACTIONS (1)
  - Somnolence [Unknown]
